FAERS Safety Report 6193739-1 (Version None)
Quarter: 2009Q2

REPORT INFORMATION
  Report Type: 
  Country: None (occurrence: None)
  Receive Date: 20090518
  Receipt Date: 20090518
  Transmission Date: 20091009
  Serious: Yes (Hospitalization)
  Sender: FDA-Public Use
  Company Number: AU-PFIZER INC-2009193440

PATIENT
  Age: 30 Year

DRUGS (1)
  1. CHAMPIX [Suspect]
     Dosage: UNK
     Dates: start: 20080101

REACTIONS (3)
  - DEPRESSION [None]
  - PARANOIA [None]
  - SUICIDAL BEHAVIOUR [None]
